FAERS Safety Report 10306645 (Version 1)
Quarter: 2014Q3

REPORT INFORMATION
  Report Type: Spontaneous
  Country: US (occurrence: US)
  Receive Date: 20140715
  Receipt Date: 20140715
  Transmission Date: 20150326
  Serious: No
  Sender: FDA-Public Use
  Company Number: US-PFIZER INC-2014193798

PATIENT
  Age: 53 Year
  Sex: Female
  Weight: 68.03 kg

DRUGS (3)
  1. XANAX [Concomitant]
     Active Substance: ALPRAZOLAM
     Indication: TEMPOROMANDIBULAR JOINT SYNDROME
     Dosage: UNK
     Dates: end: 20140706
  2. ADVIL PM [Suspect]
     Active Substance: DIPHENHYDRAMINE CITRATE\IBUPROFEN
     Indication: BACK PAIN
     Dosage: IBUPROFEN400/DIPHENHYDRAMINE50MG
     Route: 048
     Dates: start: 20140708, end: 20140709
  3. CLARITIN-D 12 HOUR [Concomitant]
     Active Substance: LORATADINE\PSEUDOEPHEDRINE SULFATE
     Dosage: UNK
     Dates: end: 20140706

REACTIONS (7)
  - Malaise [Not Recovered/Not Resolved]
  - Feeling abnormal [Unknown]
  - Vertigo [Unknown]
  - Feeling drunk [Unknown]
  - Blood pressure decreased [Unknown]
  - Dizziness [Unknown]
  - Drug ineffective [Unknown]

NARRATIVE: CASE EVENT DATE: 20140708
